FAERS Safety Report 7430560-8 (Version None)
Quarter: 2011Q2

REPORT INFORMATION
  Report Type: 
  Country: None (occurrence: None)
  Receive Date: 20110421
  Receipt Date: 20100426
  Transmission Date: 20111010
  Serious: No
  Sender: FDA-Public Use
  Company Number: US-ASTRAZENECA-2010SE18704

PATIENT
  Age: 53 Year
  Sex: Female
  Weight: 70.3 kg

DRUGS (7)
  1. TRAZODONE HCL [Concomitant]
     Indication: SLEEP DISORDER
  2. DIAVAN [Concomitant]
  3. NORVASC [Concomitant]
  4. ALBUTERAL INHALER [Concomitant]
  5. SYNTHROID [Concomitant]
     Indication: HYPOTHYROIDISM
  6. TOPROL-XL [Suspect]
     Indication: HYPERTENSION
     Route: 048
     Dates: start: 20100201
  7. ESTROGENIC SUBSTANCE [Concomitant]

REACTIONS (8)
  - PAIN IN EXTREMITY [None]
  - PERIPHERAL COLDNESS [None]
  - FATIGUE [None]
  - BRONCHOSPASM [None]
  - POOR PERIPHERAL CIRCULATION [None]
  - VISION BLURRED [None]
  - VARICOSE VEIN [None]
  - DYSPNOEA [None]
